FAERS Safety Report 6337051-6 (Version None)
Quarter: 2009Q3

REPORT INFORMATION
  Report Type: 
  Country: None (occurrence: None)
  Receive Date: 20090831
  Receipt Date: 20090825
  Transmission Date: 20100115
  Serious: Yes (Other)
  Sender: FDA-Public Use
  Company Number: 2009080053

PATIENT

DRUGS (5)
  1. FELBATOL [Suspect]
     Dosage: (3600 MG),ORAL
     Route: 047
  2. GEODON [Suspect]
     Dosage: (160 MG)
  3. ZONEGRAN [Suspect]
     Dosage: (800 MG)
  4. VIGABATRIN (VIGABATRIN) [Suspect]
     Dosage: (4000 MG)
  5. CYMBALTA [Suspect]
     Dosage: (120 MG)

REACTIONS (2)
  - CONVULSION [None]
  - DRUG INTERACTION [None]
